FAERS Safety Report 26014085 (Version 1)
Quarter: 2025Q4

REPORT INFORMATION
  Report Type: Spontaneous
  Country: TW (occurrence: TW)
  Receive Date: 20251108
  Receipt Date: 20251108
  Transmission Date: 20260117
  Serious: Yes (Death, Other)
  Sender: ROCHE
  Company Number: TW-CHUGAI-2025035221

PATIENT
  Age: 36 Year
  Sex: Male
  Weight: 90.7 kg

DRUGS (1)
  1. HEMLIBRA [Suspect]
     Active Substance: EMICIZUMAB-KXWH
     Indication: Haemophilia
     Dosage: 270 MILLIGRAM, ONCE/2WEEKS
     Route: 058
     Dates: start: 20250106, end: 2025

REACTIONS (3)
  - Lip and/or oral cavity cancer [Fatal]
  - Mouth haemorrhage [Unknown]
  - Gastrointestinal haemorrhage [Unknown]

NARRATIVE: CASE EVENT DATE: 20251017
